FAERS Safety Report 18204313 (Version 2)
Quarter: 2020Q3

REPORT INFORMATION
  Report Type: Spontaneous
  Country: US (occurrence: US)
  Receive Date: 20200827
  Receipt Date: 20200902
  Transmission Date: 20201103
  Serious: Yes (Hospitalization)
  Sender: FDA-Public Use
  Company Number: US-ASTRAZENECA-2020SE92810

PATIENT
  Age: 20892 Day
  Sex: Female
  Weight: 170.6 kg

DRUGS (16)
  1. VITAMIN D3 [Concomitant]
     Active Substance: CHOLECALCIFEROL
  2. DULOXETINE. [Concomitant]
     Active Substance: DULOXETINE
  3. PROAIR AFA [Concomitant]
     Indication: ASTHMA
     Dosage: 90.0MG AS REQUIRED
     Route: 055
  4. BYDUREON [Suspect]
     Active Substance: EXENATIDE
     Indication: DIABETES MELLITUS
     Route: 058
     Dates: start: 20181001
  5. NASONEX [Concomitant]
     Active Substance: MOMETASONE FUROATE
     Indication: MULTIPLE ALLERGIES
     Route: 045
  6. ALLOPURINOL. [Concomitant]
     Active Substance: ALLOPURINOL
     Indication: GOUT
     Route: 048
  7. LYRICA [Concomitant]
     Active Substance: PREGABALIN
  8. MONTELKULAST [Concomitant]
     Indication: ASTHMA
     Route: 048
  9. FLUTICASONE PROPION DISKUS [Concomitant]
     Indication: ASTHMA
  10. PANTOPRAZOLE [Concomitant]
     Active Substance: PANTOPRAZOLE
     Indication: DYSPEPSIA
     Route: 048
  11. FERROUS SULFATE. [Concomitant]
     Active Substance: FERROUS SULFATE
     Route: 048
  12. ALBUETROL [Concomitant]
     Indication: ASTHMA
     Dosage: 2.5MG AS REQUIRED
     Route: 055
  13. FUROSEMIDE. [Concomitant]
     Active Substance: FUROSEMIDE
     Indication: OEDEMA PERIPHERAL
  14. ATORVASTATIN [Concomitant]
     Active Substance: ATORVASTATIN
     Indication: BLOOD CHOLESTEROL INCREASED
     Route: 048
  15. LORATIDINE [Concomitant]
     Active Substance: LORATADINE
     Indication: MULTIPLE ALLERGIES
     Dosage: 10.0MEQ/ML UNKNOWN
  16. METFORMIN [Concomitant]
     Active Substance: METFORMIN HYDROCHLORIDE
     Indication: DIABETES MELLITUS

REACTIONS (6)
  - Injection site nodule [Not Recovered/Not Resolved]
  - Injection site necrosis [Recovered/Resolved]
  - Injection site pain [Not Recovered/Not Resolved]
  - Lipogranuloma [Recovered/Resolved]
  - Injection site reaction [Unknown]
  - Injection site pruritus [Not Recovered/Not Resolved]

NARRATIVE: CASE EVENT DATE: 20200601
